FAERS Safety Report 8044166-3 (Version None)
Quarter: 2012Q1

REPORT INFORMATION
  Report Type: 
  Country: None (occurrence: None)
  Receive Date: 20120113
  Receipt Date: 20120105
  Transmission Date: 20120608
  Serious: Yes (Death, Life-Threatening, Hospitalization)
  Sender: FDA-Public Use
  Company Number: PL-BRISTOL-MYERS SQUIBB COMPANY-16286148

PATIENT
  Age: 85 Year
  Sex: Male
  Weight: 85 kg

DRUGS (3)
  1. DEPAKENE [Suspect]
     Indication: SCHIZOPHRENIA, PARANOID TYPE
     Dates: start: 20111103, end: 20111210
  2. ABILIFY [Suspect]
     Indication: SCHIZOPHRENIA, PARANOID TYPE
     Dosage: 15 MG IN THE MORNING AND 15 MG IN THE EVENING LAST DOSE:15MG IN MRNG
     Route: 048
     Dates: start: 20111103, end: 20111210
  3. LAMOTRIGINE [Suspect]
     Indication: SCHIZOPHRENIA, PARANOID TYPE
     Dates: start: 20111103, end: 20111210

REACTIONS (2)
  - DEATH [None]
  - NEUROLEPTIC MALIGNANT SYNDROME [None]
